FAERS Safety Report 20429630 (Version 1)
Quarter: 2022Q1

REPORT INFORMATION
  Report Type: Spontaneous
  Country: FR (occurrence: FR)
  Receive Date: 20220204
  Receipt Date: 20220204
  Transmission Date: 20220423
  Serious: Yes (Life-Threatening, Other)
  Sender: FDA-Public Use
  Company Number: FR-AFSSAPS-AM20181658

PATIENT
  Age: 50 Year
  Sex: Female
  Weight: 74 kg

DRUGS (6)
  1. ALBUTEROL [Suspect]
     Active Substance: ALBUTEROL
     Indication: Prophylaxis
     Dosage: 5 DOSAGE FORM, 1TOTAL
     Route: 055
     Dates: start: 20181115, end: 20181115
  2. CLINDAMYCIN [Suspect]
     Active Substance: CLINDAMYCIN
     Indication: Antibiotic prophylaxis
     Dosage: 900 MILLIGRAM,1 TOTAL
     Route: 041
     Dates: start: 20181115, end: 20181115
  3. SEVOFLURANE [Suspect]
     Active Substance: SEVOFLURANE
     Indication: Anaesthesia
     Dosage: UNK
     Route: 055
     Dates: start: 20181115, end: 20181115
  4. SUFENTANIL [Suspect]
     Active Substance: SUFENTANIL
     Indication: Anaesthesia
     Dosage: 20 MG EN BOLUS PUIS PERFUSION 10 MG
     Route: 041
     Dates: start: 20181115, end: 20181115
  5. CISATRACURIUM [Suspect]
     Active Substance: CISATRACURIUM
     Indication: Anaesthesia
     Dosage: 10 MILLIGRAM, 1 TOTAL
     Route: 040
     Dates: start: 20181115, end: 20181115
  6. THIOPENTAL SODIUM [Suspect]
     Active Substance: THIOPENTAL SODIUM
     Indication: Anaesthesia
     Dosage: 625 MILLIGRAM, 1 TOTAL
     Route: 040
     Dates: start: 20181115, end: 20181115

REACTIONS (1)
  - Anaphylactic shock [Recovered/Resolved]

NARRATIVE: CASE EVENT DATE: 20181115
